FAERS Safety Report 10246431 (Version 2)
Quarter: 2014Q2

REPORT INFORMATION
  Report Type: Spontaneous
  Country: FR (occurrence: FR)
  Receive Date: 20140619
  Receipt Date: 20140619
  Transmission Date: 20141212
  Serious: Yes (Other)
  Sender: FDA-Public Use
  Company Number: FR-BAYER-2014-082057

PATIENT
  Age: 63 Year
  Sex: Male

DRUGS (2)
  1. STIVARGA [Suspect]
     Indication: RECTOSIGMOID CANCER STAGE IV
     Dosage: 40 MG, QD
     Route: 048
     Dates: start: 201405, end: 20140515
  2. STIVARGA [Suspect]
     Indication: METASTASES TO LIVER
     Dosage: REDUCED DOSE
     Dates: start: 201405, end: 201405

REACTIONS (4)
  - Hepatocellular injury [Not Recovered/Not Resolved]
  - Jaundice cholestatic [Not Recovered/Not Resolved]
  - Lipase increased [Recovering/Resolving]
  - Urticaria [Recovered/Resolved]
